FAERS Safety Report 25163459 (Version 1)
Quarter: 2025Q2

REPORT INFORMATION
  Report Type: Report from Study
  Country: ES (occurrence: ES)
  Receive Date: 20250404
  Receipt Date: 20250404
  Transmission Date: 20250717
  Serious: Yes (Hospitalization)
  Sender: ABBVIE
  Company Number: ES-ABBVIE-6207950

PATIENT
  Age: 62 Year
  Sex: Male
  Weight: 55 kg

DRUGS (1)
  1. VENETOCLAX [Suspect]
     Active Substance: VENETOCLAX
     Indication: Chronic lymphocytic leukaemia
     Route: 048

REACTIONS (1)
  - Fall [Recovered/Resolved]

NARRATIVE: CASE EVENT DATE: 20240904
